FAERS Safety Report 6460833-7 (Version None)
Quarter: 2009Q4

REPORT INFORMATION
  Report Type: 
  Country: None (occurrence: None)
  Receive Date: 20091125
  Receipt Date: 20091125
  Transmission Date: 20100525
  Serious: Yes (Life-Threatening)
  Sender: FDA-Public Use
  Company Number: None

PATIENT
  Age: 44 Year
  Sex: Female
  Weight: 62.5964 kg

DRUGS (1)
  1. FENTANYL [Suspect]
     Indication: BACK PAIN
     Dosage: PATCH CHANGE WEEKLY TRANSDERMAL
     Route: 062
     Dates: start: 20050101, end: 20050101

REACTIONS (3)
  - FEELING ABNORMAL [None]
  - PRODUCT QUALITY ISSUE [None]
  - SUICIDAL IDEATION [None]
